FAERS Safety Report 15998725 (Version 1)
Quarter: 2019Q1

REPORT INFORMATION
  Report Type: Report from Study
  Country: DE (occurrence: DE)
  Receive Date: 20190223
  Receipt Date: 20190223
  Transmission Date: 20190418
  Serious: Yes (Death, Hospitalization)
  Sender: FDA-Public Use
  Company Number: DE-TEVA-2019-DE-1013284

PATIENT
  Age: 81 Year
  Sex: Male
  Weight: 68 kg

DRUGS (21)
  1. BEVACIZUMAB. [Suspect]
     Active Substance: BEVACIZUMAB
     Route: 042
     Dates: end: 20130513
  2. CEFUROXIM [Concomitant]
     Active Substance: CEFUROXIME
     Dosage: 1500 MILLIGRAM DAILY;
     Dates: start: 20140228, end: 20140304
  3. TAMSULOSIN [Concomitant]
     Active Substance: TAMSULOSIN
     Indication: PROSTATE CANCER
     Dosage: .4 MILLIGRAM DAILY;
     Route: 048
     Dates: start: 2005
  4. METFORMIN [Concomitant]
     Active Substance: METFORMIN HYDROCHLORIDE
     Indication: TYPE 2 DIABETES MELLITUS
     Route: 065
     Dates: start: 200505
  5. CAPECITABINE. [Suspect]
     Active Substance: CAPECITABINE
     Dosage: LAST DOSE OF PRIOR TO SAE ON 20/FEB/2013
     Route: 048
     Dates: start: 20121206, end: 20121218
  6. BEVACIZUMAB. [Suspect]
     Active Substance: BEVACIZUMAB
     Indication: PROSTATE CANCER
     Dosage: DOSE= 350 MG, LAST DOSE OF PRIOR TO SAE ON 19/FEB/2013
     Dates: start: 20121204
  7. MELPERON [Concomitant]
     Active Substance: MELPERONE
     Indication: DEMENTIA
     Dosage: 10 ML DAILY;
     Route: 048
  8. CAPECITABINE. [Suspect]
     Active Substance: CAPECITABINE
     Route: 048
     Dates: start: 20121206, end: 20130529
  9. OMEPRAZOL [Concomitant]
     Active Substance: OMEPRAZOLE
     Dosage: 40 MILLIGRAM DAILY;
     Route: 048
     Dates: start: 2013
  10. CAPECITABINE. [Suspect]
     Active Substance: CAPECITABINE
     Dates: start: 20121206, end: 20130529
  11. RISPERIDON [Concomitant]
     Active Substance: RISPERIDONE
     Indication: DEMENTIA
     Dosage: .5 MILLIGRAM DAILY;
     Route: 048
     Dates: start: 2013
  12. LORAZEPAM. [Concomitant]
     Active Substance: LORAZEPAM
     Indication: DEMENTIA
     Dosage: 1 MILLIGRAM DAILY;
     Route: 048
     Dates: start: 2013
  13. CEFUROXIM [Concomitant]
     Active Substance: CEFUROXIME
     Dosage: 500 MILLIGRAM DAILY;
     Route: 048
     Dates: start: 20140304, end: 20140307
  14. MIRTAZAPIN [Concomitant]
     Active Substance: MIRTAZAPINE
     Indication: DEMENTIA
     Dosage: 30 MILLIGRAM DAILY;
     Route: 048
     Dates: start: 200505
  15. CAPECITABINE. [Suspect]
     Active Substance: CAPECITABINE
     Dosage: 3900 MILLIGRAM DAILY;
     Route: 048
     Dates: start: 20121206, end: 20121218
  16. BEVACIZUMAB. [Suspect]
     Active Substance: BEVACIZUMAB
     Route: 042
     Dates: start: 20130219
  17. ATOSIL [Concomitant]
     Active Substance: PROMETHAZINE HYDROCHLORIDE
     Dosage: 15 GTT DAILY;
     Route: 048
     Dates: start: 20130308
  18. RAMIPRIL. [Concomitant]
     Active Substance: RAMIPRIL
     Indication: HYPERTENSION
     Dosage: 5 MILLIGRAM DAILY;
     Route: 048
     Dates: start: 200505, end: 20140301
  19. CANDESARTAN. [Concomitant]
     Active Substance: CANDESARTAN
     Indication: HYPERTENSION
     Dosage: 16 MILLIGRAM DAILY;
     Route: 048
     Dates: start: 20140301
  20. AGGRENOX [Concomitant]
     Active Substance: ASPIRIN\DIPYRIDAMOLE
     Indication: INFARCTION
     Dosage: 25 MILLIGRAM DAILY;
     Route: 048
     Dates: start: 201004
  21. AMLODIPIN [Concomitant]
     Active Substance: AMLODIPINE BESYLATE
     Indication: HYPERTENSION
     Route: 065
     Dates: start: 20140301

REACTIONS (4)
  - Respiratory failure [Fatal]
  - Pyrexia [Recovered/Resolved]
  - Pneumonia [Recovered/Resolved]
  - Pneumonia [Fatal]

NARRATIVE: CASE EVENT DATE: 20130224
